FAERS Safety Report 8530611-3 (Version None)
Quarter: 2012Q3

REPORT INFORMATION
  Report Type: 
  Country: None (occurrence: None)
  Receive Date: 20120723
  Receipt Date: 20080804
  Transmission Date: 20120928
  Serious: Yes (Other)
  Sender: FDA-Public Use
  Company Number: US-BAYER-200829565NA

PATIENT
  Age: 42 Year
  Sex: Male
  Weight: 72 kg

DRUGS (38)
  1. MAGNEVIST [Suspect]
     Indication: NUCLEAR MAGNETIC RESONANCE IMAGING
     Dates: start: 20060502, end: 20060502
  2. OMNISCAN [Suspect]
     Indication: ANGIOGRAM
     Dosage: 40 ML, ONCE
     Route: 042
     Dates: start: 20040407, end: 20040407
  3. OMNISCAN [Suspect]
     Indication: ANGIOGRAM PERIPHERAL
     Dosage: 30 ML, ONCE
     Dates: start: 20040414, end: 20040414
  4. MINOXIDIL [Concomitant]
     Dosage: ^7.5^ AS OF SEP 2003
  5. CALCIUM [Concomitant]
     Dosage: AS OF SEP 2003
  6. EPOGEN [Concomitant]
  7. LABETALOL HCL [Concomitant]
  8. FERROUS SULFATE TAB [Concomitant]
  9. PREDNISONE [Concomitant]
  10. TRANDATE [Concomitant]
     Dosage: AS OF SEP 2003
  11. ROCALTROL [Concomitant]
  12. FERROUS SULFATE TAB [Concomitant]
  13. MAGNEVIST [Suspect]
     Indication: ANGIOGRAM
     Dates: start: 20060123, end: 20060123
  14. ZEMPLAR [Concomitant]
  15. CELLCEPT [Concomitant]
  16. OMNISCAN [Suspect]
     Dosage: 13 ML, ONCE
     Route: 042
     Dates: start: 20041119, end: 20041119
  17. PROCARDIA XL [Concomitant]
     Dosage: ^60^ AS OF SEP 2003
  18. GADOLINIUM IN UNSPECIFIED DRUG [Suspect]
     Indication: NUCLEAR MAGNETIC RESONANCE IMAGING BRAIN
     Dosage: 20 ML, ONCE
     Route: 042
     Dates: start: 20060123, end: 20060123
  19. METHOTREXATE [Concomitant]
     Indication: RHEUMATOID ARTHRITIS
  20. PLAQUENIL [Concomitant]
     Indication: RHEUMATOID ARTHRITIS
     Dosage: ^400^
  21. RENAGEL [Concomitant]
  22. FOLIC ACID [Concomitant]
  23. SODIUM BICARBONATE [Concomitant]
  24. OMNISCAN [Suspect]
     Dosage: 15 ML, ONCE
     Dates: start: 20040513, end: 20040513
  25. PROHANCE [Suspect]
     Dosage: UNK
  26. EPOGEN [Concomitant]
     Dosage: THREE TIMES PER WEEK, AS OF SEP 2003
  27. METHOTREXATE [Concomitant]
  28. FLOMAX [Concomitant]
  29. TACROLIMUS [Concomitant]
  30. OMNISCAN [Suspect]
     Indication: NUCLEAR MAGNETIC RESONANCE IMAGING ABDOMINAL
     Dosage: 13 ML, ONCE
     Route: 042
     Dates: start: 20040701, end: 20040701
  31. GADOLINIUM IN UNSPECIFIED DRUG [Suspect]
     Indication: NUCLEAR MAGNETIC RESONANCE IMAGING ABDOMINAL
     Dosage: 15 ML, ONCE
     Route: 042
     Dates: start: 20050526, end: 20050526
  32. GADOLINIUM IN UNSPECIFIED DRUG [Suspect]
     Indication: ANGIOGRAM
     Dosage: 40 ML, + ADDITIONAL +11-20CC
     Route: 042
     Dates: start: 20060502, end: 20060502
  33. NORVASC [Concomitant]
  34. BACTRIM [Concomitant]
  35. PROHANCE [Suspect]
     Indication: NUCLEAR MAGNETIC RESONANCE IMAGING BRAIN
     Dosage: 10 ML, ONCE
     Dates: start: 20020620
  36. VIOXX [Concomitant]
     Dosage: ^25^
  37. FAMVIR [Concomitant]
  38. CALCIUM CARBONATE [Concomitant]

REACTIONS (12)
  - NEPHROGENIC SYSTEMIC FIBROSIS [None]
  - SKIN TIGHTNESS [None]
  - EMOTIONAL DISTRESS [None]
  - JOINT RANGE OF MOTION DECREASED [None]
  - SKIN INDURATION [None]
  - JOINT STIFFNESS [None]
  - ANHEDONIA [None]
  - PAIN [None]
  - ANXIETY [None]
  - STRESS [None]
  - SKIN DISORDER [None]
  - ARTHRALGIA [None]
